FAERS Safety Report 4487682-3 (Version None)
Quarter: 2004Q4

REPORT INFORMATION
  Report Type: 
  Country: None (occurrence: None)
  Receive Date: 20041025
  Receipt Date: 20041014
  Transmission Date: 20050328
  Serious: Yes (Other)
  Sender: FDA-Public Use
  Company Number: US010024

PATIENT
  Age: 41 Year
  Sex: Female

DRUGS (5)
  1. GABITRIL [Suspect]
     Indication: AFFECTIVE DISORDER
     Dosage: 4 MG BID ORAL
     Route: 048
     Dates: start: 20011201, end: 20020618
  2. GABITRIL [Suspect]
     Indication: AFFECTIVE DISORDER
     Dosage: 4 MG QAM ORAL
     Route: 048
     Dates: start: 20020619, end: 20020731
  3. GABITRIL [Suspect]
     Indication: AFFECTIVE DISORDER
     Dosage: 8 MG QPM ORAL
     Route: 048
     Dates: start: 20020619, end: 20020731
  4. EFFEXOR XR [Concomitant]
  5. THYROID TAB [Concomitant]

REACTIONS (3)
  - COMPLEX PARTIAL SEIZURES [None]
  - PETIT MAL EPILEPSY [None]
  - STATUS EPILEPTICUS [None]
